FAERS Safety Report 5733843-2 (Version None)
Quarter: 2008Q2

REPORT INFORMATION
  Report Type: 
  Country: None (occurrence: None)
  Receive Date: 20080509
  Receipt Date: 20080428
  Transmission Date: 20081010
  Serious: Yes (Other)
  Sender: FDA-Public Use
  Company Number: GB-PFIZER INC-2008035370

PATIENT
  Sex: Female
  Weight: 88 kg

DRUGS (23)
  1. CHANTIX [Suspect]
     Indication: SMOKING CESSATION THERAPY
     Route: 048
  2. AMITRIPTLINE HCL [Concomitant]
     Route: 048
  3. AQUEOUS CREAM [Concomitant]
     Route: 061
  4. ASPIRIN [Concomitant]
     Route: 048
  5. BACLOFEN [Concomitant]
     Route: 048
  6. BECLOMETHASONE DIPROPIONATE [Concomitant]
  7. ACETAMINOPHEN W/ CODEINE [Concomitant]
     Route: 048
  8. FUROSEMIDE [Concomitant]
     Route: 048
  9. GABAPENTIN [Concomitant]
     Route: 048
  10. GLICLAZIDE [Concomitant]
     Route: 048
  11. LANSOPRAZOLE [Concomitant]
     Route: 048
  12. METFORMIN HCL [Concomitant]
     Route: 048
  13. NULYTELY [Concomitant]
  14. PERINDOPRIL ERBUMINE [Concomitant]
     Route: 048
  15. SIMVASTATIN [Concomitant]
     Route: 048
  16. SULFASALAZINE [Concomitant]
     Route: 048
  17. ZAMADOL [Concomitant]
     Route: 048
  18. ZOPICLONE [Concomitant]
     Route: 048
  19. FERROUS SULFATE TAB [Concomitant]
     Route: 048
  20. METOPROLOL TARTRATE [Concomitant]
     Route: 048
  21. DIAZEPAM [Concomitant]
     Route: 048
  22. GLYCERYL TRINITRATE [Concomitant]
  23. NIQUITIN [Concomitant]

REACTIONS (1)
  - CHEST PAIN [None]
